FAERS Safety Report 9885310 (Version 1)
Quarter: 2014Q1

REPORT INFORMATION
  Report Type: Spontaneous
  Country: JP (occurrence: JP)
  Receive Date: 20140210
  Receipt Date: 20140210
  Transmission Date: 20141002
  Serious: Yes (Other)
  Sender: FDA-Public Use
  Company Number: JP-BAYER-2014-017091

PATIENT
  Age: 44 Year
  Sex: Male

DRUGS (6)
  1. DACARBAZINE [Suspect]
     Indication: MALIGNANT MELANOMA
     Dosage: 5000 MG
     Route: 048
  2. DACARBAZINE [Suspect]
     Indication: MALIGNANT MELANOMA
     Dosage: 4500 MG
     Route: 048
  3. NIMUSTINE HYDROCHLORIDE [Suspect]
     Indication: MALIGNANT MELANOMA
     Dosage: 500 MG
     Route: 048
  4. NIMUSTINE HYDROCHLORIDE [Suspect]
     Indication: MALIGNANT MELANOMA
     Dosage: 500 MG
     Route: 048
  5. VINCRISTINE SULFATE [Suspect]
     Indication: MALIGNANT MELANOMA
     Dosage: 5 MG
     Route: 048
  6. CISPLATIN [Suspect]
     Indication: MALIGNANT MELANOMA
     Dosage: 600 MG
     Route: 048

REACTIONS (1)
  - Myelodysplastic syndrome [None]
